FAERS Safety Report 4433645-3 (Version None)
Quarter: 2004Q3

REPORT INFORMATION
  Report Type: 
  Country: None (occurrence: None)
  Receive Date: 20040824
  Receipt Date: 20040809
  Transmission Date: 20050211
  Serious: Yes (Death)
  Sender: FDA-Public Use
  Company Number: 2004-DE-04368GD

PATIENT
  Sex: Female

DRUGS (2)
  1. NEVIRAPINE (NEVIRAPINE) [Suspect]
  2. ANTIRETROVIRALS (ANTIVIRALS FOR SYSTEMIC USE) [Concomitant]

REACTIONS (2)
  - DRUG EXPOSURE DURING PREGNANCY [None]
  - HEPATIC FAILURE [None]
